FAERS Safety Report 16724798 (Version 2)
Quarter: 2019Q3

REPORT INFORMATION
  Report Type: Report from Study
  Country: None (occurrence: BG)
  Receive Date: 20190821
  Receipt Date: 20190828
  Transmission Date: 20191005
  Serious: Yes (Death, Hospitalization, Other)
  Sender: FDA-Public Use
  Company Number: BG-ABBVIE-19K-022-2894889-00

PATIENT
  Age: 80 Year
  Sex: Male

DRUGS (1)
  1. DUODOPA [Suspect]
     Active Substance: CARBIDOPA\LEVODOPA
     Indication: PARKINSON^S DISEASE
     Dosage: MD- 13.5 ML??CR- 3.5 ML/H??EX- 1.5 ML
     Route: 050
     Dates: start: 20171010, end: 20190823

REACTIONS (4)
  - Death [Fatal]
  - Urinary tract infection [Not Recovered/Not Resolved]
  - Sepsis [Unknown]
  - Multiple organ dysfunction syndrome [Unknown]

NARRATIVE: CASE EVENT DATE: 20190818
